APPROVED DRUG PRODUCT: BACLOFEN
Active Ingredient: BACLOFEN
Strength: 2MG/ML
Dosage Form/Route: INJECTABLE;INTRATHECAL
Application: A210048 | Product #002 | TE Code: AP
Applicant: MAIA PHARMACEUTICALS INC
Approved: Sep 11, 2019 | RLD: No | RS: No | Type: RX